FAERS Safety Report 16070533 (Version 1)
Quarter: 2019Q2

REPORT INFORMATION
  Report Type: Spontaneous
  Country: US (occurrence: US)
  Receive Date: 20190313
  Receipt Date: 20190313
  Transmission Date: 20190711
  Serious: Yes (Life-Threatening)
  Sender: FDA-Public Use
  Company Number: None

PATIENT
  Age: 28 Year
  Sex: Female
  Weight: 83.7 kg

DRUGS (2)
  1. IRON DEXTRAN [Suspect]
     Active Substance: IRON DEXTRAN
     Indication: IRON DEFICIENCY ANAEMIA
     Route: 042
     Dates: start: 20190313, end: 20190313
  2. IRON DEXTRAN [Suspect]
     Active Substance: IRON DEXTRAN
     Indication: ANAEMIA OF PREGNANCY
     Route: 042
     Dates: start: 20190313, end: 20190313

REACTIONS (9)
  - Tachypnoea [None]
  - Flushing [None]
  - Tachycardia [None]
  - Chest pain [None]
  - Maternal condition affecting foetus [None]
  - Exposure during pregnancy [None]
  - Throat tightness [None]
  - Hyperhidrosis [None]
  - Infusion related reaction [None]

NARRATIVE: CASE EVENT DATE: 20190313
